FAERS Safety Report 7476132-0 (Version None)
Quarter: 2011Q2

REPORT INFORMATION
  Report Type: 
  Country: None (occurrence: None)
  Receive Date: 20110505
  Receipt Date: 20110421
  Transmission Date: 20111010
  Serious: Yes (Hospitalization, Other)
  Sender: FDA-Public Use
  Company Number: 2011AP000710

PATIENT
  Age: 82 Year
  Sex: Female

DRUGS (16)
  1. AMITRIPTYLINE HCL [Suspect]
     Indication: INSOMNIA
     Dosage: 50 MG; QD;
  2. ASPIRIN [Concomitant]
  3. CHOLECALCIFEROL [Concomitant]
  4. CALCITRIOL [Concomitant]
  5. FERROUS SULFATE TAB [Concomitant]
  6. TIAGABINE HCL [Concomitant]
  7. OXYCODONE HCL [Concomitant]
  8. TOLTERODINE TARTRATE [Concomitant]
  9. BUMETANIDE [Concomitant]
  10. LIDOCAINE [Concomitant]
  11. TIZANIDINE HCL [Concomitant]
  12. AMIODARONE HYDROCHLORIDE [Suspect]
     Indication: ATRIAL FIBRILLATION
     Dosage: 200 MG; QD;
  13. ALENDRONATE SODIUM [Concomitant]
  14. CYANOCOBALAMIN [Concomitant]
  15. SIMVASTATIN [Concomitant]
  16. PANTOPRAZOLE [Concomitant]

REACTIONS (11)
  - HAEMOGLOBIN DECREASED [None]
  - TOXICITY TO VARIOUS AGENTS [None]
  - DYSARTHRIA [None]
  - INSOMNIA [None]
  - DRY MOUTH [None]
  - DYSKINESIA [None]
  - DEHYDRATION [None]
  - BLOOD UREA INCREASED [None]
  - BLOOD CREATINE INCREASED [None]
  - EXTRAPYRAMIDAL DISORDER [None]
  - DRUG INTERACTION [None]
